FAERS Safety Report 9337991 (Version 1)
Quarter: 2013Q2

REPORT INFORMATION
  Report Type: Report from Study
  Country: US (occurrence: US)
  Receive Date: 20130609
  Receipt Date: 20130609
  Transmission Date: 20140414
  Serious: Yes (Hospitalization)
  Sender: FDA-Public Use
  Company Number: PHEH2012US021291

PATIENT
  Sex: Male

DRUGS (4)
  1. GLEEVEC [Suspect]
     Indication: GASTROINTESTINAL CANCER METASTATIC
     Dosage: 400 MG, QD
     Route: 048
     Dates: start: 20120717
  2. GLEEVEC [Suspect]
     Indication: CHRONIC MYELOID LEUKAEMIA
     Dosage: 400 MG, DAILY
     Route: 048
     Dates: start: 201301
  3. LASIX [Concomitant]
     Dosage: 40 MG, DAILY
     Route: 048
  4. LASIX [Concomitant]
     Dosage: 60 MG, DAILY
     Route: 048

REACTIONS (3)
  - Gastric disorder [Unknown]
  - Dyspnoea [Unknown]
  - Fluid retention [Unknown]
